FAERS Safety Report 5035620-7 (Version None)
Quarter: 2006Q2

REPORT INFORMATION
  Report Type: 
  Country: None (occurrence: None)
  Receive Date: 20060627
  Receipt Date: 20060331
  Transmission Date: 20061013
  Serious: Yes (Hospitalization)
  Sender: FDA-Public Use
  Company Number: JP-JPN-A200601099

PATIENT
  Age: 77 Year
  Sex: Female

DRUGS (1)
  1. FLUTIDE DISKUS [Suspect]
     Indication: ASTHMA
     Dosage: 200MCG TWICE PER DAY
     Route: 055
     Dates: start: 20000707, end: 20051210

REACTIONS (4)
  - DRUG ERUPTION [None]
  - ERYTHEMA [None]
  - PIGMENTATION DISORDER [None]
  - PRURITUS [None]
